FAERS Safety Report 9245086 (Version 2)
Quarter: 2013Q2

REPORT INFORMATION
  Report Type: Spontaneous
  Country: BR (occurrence: BR)
  Receive Date: 20130422
  Receipt Date: 20130625
  Transmission Date: 20140414
  Serious: Yes (Other)
  Sender: FDA-Public Use
  Company Number: PHHY2013BR038389

PATIENT
  Sex: Male
  Weight: 46 kg

DRUGS (2)
  1. RITALIN [Suspect]
     Indication: ATTENTION DEFICIT/HYPERACTIVITY DISORDER
     Dosage: 1 DF, BID
     Route: 048
  2. RITALIN [Suspect]
     Dosage: 0.5 DF, DAILY
     Route: 048

REACTIONS (5)
  - Bipolar disorder [Not Recovered/Not Resolved]
  - Drug administered to patient of inappropriate age [Unknown]
  - Agitation [Not Recovered/Not Resolved]
  - Disturbance in attention [Not Recovered/Not Resolved]
  - Drug ineffective [Unknown]
